FAERS Safety Report 21067744 (Version 1)
Quarter: 2022Q3

REPORT INFORMATION
  Report Type: Other
  Country: GB (occurrence: None)
  Receive Date: 20220712
  Receipt Date: 20220712
  Transmission Date: 20221027
  Serious: Yes (Other)
  Sender: FDA-Public Use
  Company Number: GB-ROCHE-3133012

PATIENT
  Sex: Female

DRUGS (1)
  1. RISDIPLAM [Suspect]
     Active Substance: RISDIPLAM
     Indication: Spinal muscular atrophy
     Dosage: POWDER FOR SOLUTION STRENGTH: 0.75MG/ML  DOSE: 5MG (6.6ML ONCE DAILY)
     Route: 065
     Dates: start: 20210122

REACTIONS (1)
  - Spinal disorder [Unknown]
